FAERS Safety Report 6807616-3 (Version None)
Quarter: 2010Q2

REPORT INFORMATION
  Report Type: 
  Country: None (occurrence: None)
  Receive Date: 20100629
  Receipt Date: 20090106
  Transmission Date: 20101027
  Serious: No
  Sender: FDA-Public Use
  Company Number: US-PFIZER INC-2008094317

PATIENT
  Age: 65 Year
  Sex: Female

DRUGS (7)
  1. ZYVOX [Suspect]
     Indication: ENTEROCOCCAL INFECTION
     Dates: start: 20080916
  2. CEFTRIAXONE [Concomitant]
  3. PHENYTOIN [Concomitant]
  4. KEPPRA [Concomitant]
  5. CIPROFLOXACIN [Concomitant]
  6. LEVAQUIN [Concomitant]
  7. GENERAL NUTRIENTS [Concomitant]

REACTIONS (1)
  - INTERNATIONAL NORMALISED RATIO ABNORMAL [None]
